FAERS Safety Report 9279598 (Version 1)
Quarter: 2013Q2

REPORT INFORMATION
  Report Type: Spontaneous
  Country: MY (occurrence: MY)
  Receive Date: 20130509
  Receipt Date: 20130509
  Transmission Date: 20140414
  Serious: Yes (Other)
  Sender: FDA-Public Use
  Company Number: MY-ROCHE-1222005

PATIENT
  Age: 47 Year
  Sex: Male

DRUGS (1)
  1. METALYSE [Suspect]
     Indication: PRODUCT USED FOR UNKNOWN INDICATION
     Route: 042

REACTIONS (5)
  - Torsade de pointes [Not Recovered/Not Resolved]
  - Convulsion [Not Recovered/Not Resolved]
  - Ventricular fibrillation [Not Recovered/Not Resolved]
  - Supraventricular tachycardia [Not Recovered/Not Resolved]
  - Ventricular tachycardia [Not Recovered/Not Resolved]
